FAERS Safety Report 26184335 (Version 1)
Quarter: 2025Q4

REPORT INFORMATION
  Report Type: Spontaneous
  Country: US (occurrence: US)
  Receive Date: 20251222
  Receipt Date: 20251222
  Transmission Date: 20260117
  Serious: No
  Sender: SANOFI AVENTIS
  Company Number: US-SA-2025SA303849

PATIENT
  Age: 70 Year
  Sex: Male

DRUGS (1)
  1. DUPIXENT [Suspect]
     Active Substance: DUPILUMAB
     Indication: Nasal polyps
     Dosage: 300 MG, QOW
     Route: 058

REACTIONS (5)
  - Nasal congestion [Not Recovered/Not Resolved]
  - Condition aggravated [Unknown]
  - Drug ineffective [Unknown]
  - Anosmia [Not Recovered/Not Resolved]
  - Nasal polypectomy [Unknown]

NARRATIVE: CASE EVENT DATE: 20251201
